FAERS Safety Report 21278542 (Version 1)
Quarter: 2022Q3

REPORT INFORMATION
  Report Type: Spontaneous
  Country: US (occurrence: US)
  Receive Date: 20220901
  Receipt Date: 20220901
  Transmission Date: 20221026
  Serious: No
  Sender: FDA-Public Use
  Company Number: US-drreddys-SPO/USA/22/0153457

PATIENT
  Age: 28 Year
  Sex: Female

DRUGS (2)
  1. ACCUTANE [Suspect]
     Active Substance: ISOTRETINOIN
     Indication: Product used for unknown indication
     Dates: start: 20220330
  2. ACCUTANE [Suspect]
     Active Substance: ISOTRETINOIN

REACTIONS (8)
  - Lip dry [Unknown]
  - Dry skin [Unknown]
  - Arthralgia [Unknown]
  - Myalgia [Unknown]
  - Epistaxis [Not Recovered/Not Resolved]
  - Rash [Not Recovered/Not Resolved]
  - Drug ineffective [Unknown]
  - Product quality issue [Unknown]
